FAERS Safety Report 7748904-6 (Version None)
Quarter: 2011Q3

REPORT INFORMATION
  Report Type: 
  Country: None (occurrence: None)
  Receive Date: 20110913
  Receipt Date: 20110913
  Transmission Date: 20111222
  Serious: Yes (Other)
  Sender: FDA-Public Use
  Company Number: None

PATIENT
  Age: 70 Year
  Sex: Male
  Weight: 112.9 kg

DRUGS (2)
  1. HEPARIN [Suspect]
     Indication: VASCULAR OPERATION
     Dosage: 5000 UNITS BID SQ
     Route: 058
     Dates: start: 20100922, end: 20110503
  2. HEPARIN [Suspect]
     Indication: THROMBOSIS PROPHYLAXIS
     Dosage: 5000 UNITS BID SQ
     Route: 058
     Dates: start: 20100922, end: 20110503

REACTIONS (3)
  - PULMONARY EMBOLISM [None]
  - TREATMENT FAILURE [None]
  - DEEP VEIN THROMBOSIS [None]
